FAERS Safety Report 18595927 (Version 1)
Quarter: 2020Q4

REPORT INFORMATION
  Report Type: Spontaneous
  Country: US (occurrence: US)
  Receive Date: 20201209
  Receipt Date: 20201209
  Transmission Date: 20210114
  Serious: No
  Sender: FDA-Public Use
  Company Number: US-SUPERNUS PHARMACEUTICALS, INC.-2020SUP00126

PATIENT

DRUGS (1)
  1. TROKENDI XR [Suspect]
     Active Substance: TOPIRAMATE
     Dosage: UNK

REACTIONS (5)
  - Weight increased [Unknown]
  - Illness [Unknown]
  - Weight decreased [Recovered/Resolved]
  - Photosensitivity reaction [Unknown]
  - Somnolence [Unknown]
